FAERS Safety Report 4800087-8 (Version None)
Quarter: 2005Q4

REPORT INFORMATION
  Report Type: 
  Country: None (occurrence: None)
  Receive Date: 20051012
  Receipt Date: 20051012
  Transmission Date: 20060501
  Serious: Yes (Hospitalization)
  Sender: FDA-Public Use
  Company Number: None

PATIENT
  Sex: Male
  Weight: 117.9352 kg

DRUGS (9)
  1. GEMZAR [Suspect]
     Indication: NEOPLASM MALIGNANT
     Dosage: RECENT TREATMENT
  2. NORVASC [Concomitant]
  3. PLAVIX [Concomitant]
  4. TOPROL-XL [Concomitant]
  5. LIPITOR [Concomitant]
  6. ASPIRIN [Concomitant]
  7. PRILOSEC [Concomitant]
  8. INSULIN [Concomitant]
  9. PAXIL [Concomitant]

REACTIONS (8)
  - ASTHENIA [None]
  - CHILLS [None]
  - DEHYDRATION [None]
  - ELECTROLYTE IMBALANCE [None]
  - FATIGUE [None]
  - MALAISE [None]
  - PANCYTOPENIA [None]
  - RENAL FAILURE ACUTE [None]
